FAERS Safety Report 4631624-4 (Version None)
Quarter: 2005Q2

REPORT INFORMATION
  Report Type: 
  Country: None (occurrence: None)
  Receive Date: 20050407
  Receipt Date: 20050328
  Transmission Date: 20051028
  Serious: No
  Sender: FDA-Public Use
  Company Number: 2005UW05013

PATIENT
  Age: 35 Year
  Sex: Female

DRUGS (2)
  1. ZOMIG [Suspect]
     Indication: MIGRAINE
     Dosage: 2.5 MG ONCE PO
     Route: 048
     Dates: start: 20050101, end: 20050101
  2. ZOMIG [Suspect]
     Indication: MIGRAINE
     Dosage: 2.5 MG ONCE PO
     Route: 048
     Dates: start: 20050201, end: 20050201

REACTIONS (1)
  - HAEMATOCHEZIA [None]
